FAERS Safety Report 6519248-5 (Version None)
Quarter: 2009Q4

REPORT INFORMATION
  Report Type: 
  Country: None (occurrence: None)
  Receive Date: 20091228
  Receipt Date: 20091216
  Transmission Date: 20100525
  Serious: Yes (Other)
  Sender: FDA-Public Use
  Company Number: PHHY2009JP56407

PATIENT
  Age: 52 Year
  Sex: Male

DRUGS (2)
  1. CYCLOSPORINE [Suspect]
     Indication: CORD BLOOD TRANSPLANT THERAPY
  2. MYCOPHENOLATE MOFETIL [Concomitant]
     Indication: CORD BLOOD TRANSPLANT THERAPY
     Dosage: 1G

REACTIONS (6)
  - ACUTE GRAFT VERSUS HOST DISEASE IN SKIN [None]
  - CARDIAC FAILURE [None]
  - GENERALISED OEDEMA [None]
  - HYPOPROTEINAEMIA [None]
  - RENAL IMPAIRMENT [None]
  - VENOOCCLUSIVE LIVER DISEASE [None]
